FAERS Safety Report 17970427 (Version 2)
Quarter: 2020Q3

REPORT INFORMATION
  Report Type: Spontaneous
  Country: CA (occurrence: CA)
  Receive Date: 20200701
  Receipt Date: 20200717
  Transmission Date: 20201103
  Serious: No
  Sender: FDA-Public Use
  Company Number: CA-TOLMAR, INC.-20CA021676

PATIENT
  Sex: Male

DRUGS (2)
  1. ELIGARD [Suspect]
     Active Substance: LEUPROLIDE ACETATE
     Dosage: 30 MG, UNKNOWN FREQUENCY
     Route: 065
     Dates: start: 20200218
  2. ELIGARD [Suspect]
     Active Substance: LEUPROLIDE ACETATE
     Indication: PRODUCT USED FOR UNKNOWN INDICATION
     Dosage: 30 MG, UNKNOWN FREQUENCY
     Route: 065
     Dates: start: 20200610

REACTIONS (2)
  - Intercepted product preparation error [None]
  - Product physical consistency issue [None]

NARRATIVE: CASE EVENT DATE: 20200610
